FAERS Safety Report 9127862 (Version 1)
Quarter: 2013Q1

REPORT INFORMATION
  Report Type: Spontaneous
  Country: US (occurrence: US)
  Receive Date: 20130228
  Receipt Date: 20130228
  Transmission Date: 20140127
  Serious: No
  Sender: FDA-Public Use
  Company Number: US-GLAXOSMITHKLINE-A1005562A

PATIENT
  Age: 34 Year
  Sex: Female

DRUGS (2)
  1. LAMOTRIGINE [Suspect]
     Indication: DEPRESSION
     Dosage: 300MG TWICE PER DAY
     Route: 048
     Dates: start: 201011, end: 201211
  2. NO CONCURRENT MEDICATION [Concomitant]

REACTIONS (3)
  - Gingival erythema [Recovering/Resolving]
  - Gingival swelling [Recovering/Resolving]
  - Gingival bleeding [Recovering/Resolving]
